FAERS Safety Report 22089398 (Version 1)
Quarter: 2023Q1

REPORT INFORMATION
  Report Type: Spontaneous
  Country: BR (occurrence: BR)
  Receive Date: 20230313
  Receipt Date: 20230313
  Transmission Date: 20230417
  Serious: Yes (Other)
  Sender: FDA-Public Use
  Company Number: BR-TAKEDA-2023TUS021772

PATIENT
  Age: 67 Year
  Sex: Female
  Weight: 53.8 kg

DRUGS (3)
  1. MESALAMINE [Suspect]
     Active Substance: MESALAMINE
     Indication: Diverticulitis
     Dosage: 800 MILLIGRAM, BID
     Route: 048
     Dates: start: 2005
  2. MESALAMINE [Suspect]
     Active Substance: MESALAMINE
     Dosage: UNK, BID
     Route: 048
  3. MESALAMINE [Suspect]
     Active Substance: MESALAMINE
     Indication: Product used for unknown indication
     Dosage: UNK
     Route: 065

REACTIONS (5)
  - Diverticulitis [Unknown]
  - Product residue present [Unknown]
  - Bowel movement irregularity [Unknown]
  - Infection [Unknown]
  - Wrong technique in product usage process [Unknown]
